FAERS Safety Report 11627162 (Version 1)
Quarter: 2015Q4

REPORT INFORMATION
  Report Type: Spontaneous
  Country: US (occurrence: US)
  Receive Date: 20151013
  Receipt Date: 20151013
  Transmission Date: 20160304
  Serious: No
  Sender: FDA-Public Use
  Company Number: US-AMGEN-USASP2014089385

PATIENT
  Age: 61 Year
  Sex: Female

DRUGS (2)
  1. PEGYLATED INTERFERON NOS [Concomitant]
     Active Substance: PEGINTERFERON ALFA-2A OR PEGINTERFERON ALFA-2B OR PEGINTERFERON BETA-1A OR PEGINTERFERON LAMBDA-1A
     Indication: HEPATITIS C
     Dosage: UNK
     Dates: start: 20140423
  2. NEUPOGEN [Suspect]
     Active Substance: FILGRASTIM
     Indication: NEUTROPENIA
     Dosage: 300 MUG, ONCE WEEKLY
     Route: 065
     Dates: start: 20140620

REACTIONS (2)
  - Ageusia [Unknown]
  - Dysgeusia [Unknown]

NARRATIVE: CASE EVENT DATE: 2014
